FAERS Safety Report 18559294 (Version 1)
Quarter: 2020Q4

REPORT INFORMATION
  Report Type: Spontaneous
  Country: US (occurrence: US)
  Receive Date: 20201127
  Receipt Date: 20201127
  Transmission Date: 20210114
  Serious: Yes (Disabling)
  Sender: FDA-Public Use
  Company Number: None

PATIENT
  Age: 52 Year
  Sex: Female
  Weight: 94.5 kg

DRUGS (11)
  1. LAMICTAL [Concomitant]
     Active Substance: LAMOTRIGINE
  2. AMANTADINE. [Concomitant]
     Active Substance: AMANTADINE HYDROCHLORIDE
  3. VITAMIN E [Concomitant]
     Active Substance: .ALPHA.-TOCOPHEROL
  4. ALLEGRA [Concomitant]
     Active Substance: FEXOFENADINE HYDROCHLORIDE
  5. ABILIFY [Suspect]
     Active Substance: ARIPIPRAZOLE
     Indication: BIPOLAR II DISORDER
     Dosage: ?          QUANTITY:1 TABLET(S);?
     Route: 048
  6. KLONOPIN [Concomitant]
     Active Substance: CLONAZEPAM
  7. B6 [Concomitant]
     Active Substance: PYRIDOXINE HYDROCHLORIDE
  8. 761 GINKGO BILOBA EXTRACT [Concomitant]
  9. NASACORT [Concomitant]
     Active Substance: TRIAMCINOLONE ACETONIDE
  10. CBD (NO THC) [Concomitant]
  11. STOOL SOFTENER (DOCUSATE) [Concomitant]
     Active Substance: DOCUSATE

REACTIONS (1)
  - Tardive dyskinesia [None]

NARRATIVE: CASE EVENT DATE: 20200628
